FAERS Safety Report 9559873 (Version 1)
Quarter: 2013Q3

REPORT INFORMATION
  Report Type: Spontaneous
  Country: FR (occurrence: None)
  Receive Date: 20130925
  Receipt Date: 20130925
  Transmission Date: 20140515
  Serious: Yes (Other)
  Sender: FDA-Public Use
  Company Number: DSM-2013-00851

PATIENT
  Age: 42 Year
  Sex: Female

DRUGS (3)
  1. COOLMETEC (HYDROCHLOROTHIAZIDE, OLMESARTAN MEDOXOMIL) (TABLET) (HYDROCHLOROTHIAZIDE, OLMESARTAN MEDOXOMIL) [Suspect]
     Indication: HYPERTENSION
     Route: 048
     Dates: start: 20130301
  2. METOPROLOL TARTRATE [Suspect]
     Indication: MIGRAINE
     Route: 048
     Dates: start: 20130301, end: 20130809
  3. NAFTIDROFURYL [Suspect]
     Indication: RAYNAUD^S PHENOMENON
     Dosage: 2 DOSAGE FORMS, ORAL
     Route: 048
     Dates: start: 20130301

REACTIONS (5)
  - Hallucination, visual [None]
  - Somnambulism [None]
  - Wrist fracture [None]
  - Face injury [None]
  - Fall [None]
